FAERS Safety Report 6192774-7 (Version None)
Quarter: 2009Q2

REPORT INFORMATION
  Report Type: 
  Country: None (occurrence: None)
  Receive Date: 20090518
  Receipt Date: 20081105
  Transmission Date: 20091009
  Serious: No
  Sender: FDA-Public Use
  Company Number: US-TYCO HEALTHCARE/MALLINCKRODT-T200801906

PATIENT

DRUGS (4)
  1. ACETAMINOPHEN AND HYDROCODONE BITARTRATE [Suspect]
     Dosage: 1 TAB Q6, PRN
     Route: 048
     Dates: start: 20080921, end: 20081026
  2. VALIUM [Concomitant]
     Indication: MIGRAINE
     Dosage: 5 MG, QD
     Route: 048
  3. PREMARIN [Concomitant]
     Indication: HYSTERECTOMY
     Dosage: .625 MG, QD
     Route: 048
  4. ENABLEX                            /01760401/ [Concomitant]
     Indication: BLADDER DISORDER
     Dosage: .15 MG, QD
     Route: 048

REACTIONS (3)
  - BLISTER [None]
  - PRURITUS [None]
  - URTICARIA [None]
